FAERS Safety Report 9452517 (Version 1)
Quarter: 2013Q3

REPORT INFORMATION
  Report Type: Spontaneous
  Country: US (occurrence: US)
  Receive Date: 20130812
  Receipt Date: 20130812
  Transmission Date: 20140515
  Serious: No
  Sender: FDA-Public Use
  Company Number: US-PFIZER INC-2013231602

PATIENT
  Age: 52 Year
  Sex: Female
  Weight: 88.44 kg

DRUGS (6)
  1. CELEBREX [Suspect]
     Indication: BURSITIS
     Dosage: 200 MG, 1X/DAY
     Dates: start: 201111
  2. CELEBREX [Suspect]
     Dosage: 200 MG, 1X/DAY
     Dates: start: 201305
  3. DEXILANT [Concomitant]
     Indication: GASTROOESOPHAGEAL REFLUX DISEASE
     Dosage: 60 MG, 1X/DAY
  4. ZOLOFT [Concomitant]
     Indication: ANXIETY
     Dosage: 25 MG, 1X/DAY
  5. ZOLOFT [Concomitant]
     Indication: PANIC ATTACK
  6. ACTIVELLA [Concomitant]
     Indication: HORMONE LEVEL ABNORMAL
     Dosage: [ESTRADIOL 1 MG]/[NORETHISTERONE 1.2 MG], 1X/DAY

REACTIONS (2)
  - Abdominal pain upper [Unknown]
  - Epigastric discomfort [Unknown]
